FAERS Safety Report 19361769 (Version 3)
Quarter: 2022Q2

REPORT INFORMATION
  Report Type: Spontaneous
  Country: JP (occurrence: JP)
  Receive Date: 20210602
  Receipt Date: 20220613
  Transmission Date: 20220720
  Serious: Yes (Death, Hospitalization)
  Sender: FDA-Public Use
  Company Number: JP-EISAI-202102045_LEN-HCC_P_1

PATIENT
  Age: 62 Year
  Sex: Male

DRUGS (4)
  1. LENVATINIB [Suspect]
     Active Substance: LENVATINIB
     Indication: Hepatocellular carcinoma
     Route: 048
     Dates: start: 20180413, end: 2019
  2. LENVATINIB [Suspect]
     Active Substance: LENVATINIB
     Route: 048
     Dates: start: 2019, end: 20200601
  3. EVEROLIMUS [Concomitant]
     Active Substance: EVEROLIMUS
     Indication: Immunosuppression
     Dates: start: 2018, end: 2018
  4. EVEROLIMUS [Concomitant]
     Active Substance: EVEROLIMUS
     Dates: start: 2018

REACTIONS (11)
  - Cholangitis infective [Recovering/Resolving]
  - Liver abscess [Recovering/Resolving]
  - Malignant neoplasm progression [Fatal]
  - Palmar-plantar erythrodysaesthesia syndrome [Unknown]
  - Hypertension [Unknown]
  - Diarrhoea [Unknown]
  - Cough [Unknown]
  - Dysphonia [Unknown]
  - Renal impairment [Unknown]
  - Proteinuria [Unknown]
  - Pyrexia [Recovering/Resolving]

NARRATIVE: CASE EVENT DATE: 20180101
